APPROVED DRUG PRODUCT: ERYTHROMYCIN ETHYLSUCCINATE
Active Ingredient: ERYTHROMYCIN ETHYLSUCCINATE
Strength: EQ 400MG BASE/5ML
Dosage Form/Route: GRANULE;ORAL
Application: A211204 | Product #002 | TE Code: AB
Applicant: AMNEAL PHARMACEUTICALS OF NEW YORK LLC
Approved: Nov 1, 2019 | RLD: No | RS: No | Type: RX